FAERS Safety Report 5690488-0 (Version None)
Quarter: 2008Q1

REPORT INFORMATION
  Report Type: 
  Country: None (occurrence: None)
  Receive Date: 20080331
  Receipt Date: 20080331
  Transmission Date: 20080703
  Serious: Yes (Other)
  Sender: FDA-Public Use
  Company Number: None

PATIENT
  Age: 11 Year
  Sex: Male
  Weight: 38.5557 kg

DRUGS (2)
  1. SINGULAIR [Suspect]
     Indication: ASTHMA
     Dosage: 1 TABLET  ONCE A DAY  PO
     Route: 048
     Dates: start: 19990101, end: 20080328
  2. SINGULAIR [Suspect]
     Indication: MULTIPLE ALLERGIES
     Dosage: 1 TABLET  ONCE A DAY  PO
     Route: 048
     Dates: start: 19990101, end: 20080328

REACTIONS (3)
  - AGGRESSION [None]
  - DEPRESSION [None]
  - MOOD ALTERED [None]
